FAERS Safety Report 9563850 (Version 1)
Quarter: 2013Q3

REPORT INFORMATION
  Report Type: Spontaneous
  Country: US (occurrence: None)
  Receive Date: 20130926
  Receipt Date: 20130926
  Transmission Date: 20140515
  Serious: Yes (Disabling, Other)
  Sender: FDA-Public Use
  Company Number: None

PATIENT
  Age: 61 Year
  Sex: Female
  Weight: 63.5 kg

DRUGS (1)
  1. AVELOX [Suspect]
     Indication: SINUSITIS
     Dosage: ONCE DAILY
     Route: 048
     Dates: start: 20100301, end: 20100501

REACTIONS (5)
  - Arthralgia [None]
  - Hypersensitivity [None]
  - Panic attack [None]
  - Neuropathy peripheral [None]
  - General physical health deterioration [None]
